FAERS Safety Report 7749997-2 (Version None)
Quarter: 2011Q3

REPORT INFORMATION
  Report Type: 
  Country: None (occurrence: None)
  Receive Date: 20110914
  Receipt Date: 20110830
  Transmission Date: 20111222
  Serious: No
  Sender: FDA-Public Use
  Company Number: US-B.I. PHARMACEUTICALS,INC./RIDGEFIELD-2011-BP-16232BP

PATIENT
  Age: 57 Year
  Sex: Female

DRUGS (11)
  1. LIPITOR [Concomitant]
     Indication: RESTLESS LEGS SYNDROME
     Dosage: 40 MG
     Route: 048
  2. PREVACID [Concomitant]
     Dosage: 15 MG
     Route: 048
  3. SPIRIVA [Suspect]
     Indication: CHRONIC OBSTRUCTIVE PULMONARY DISEASE
     Dosage: 18 MCG
     Route: 055
     Dates: start: 20060101
  4. LORTAB [Concomitant]
     Indication: BREAKTHROUGH PAIN
     Route: 048
  5. OXYCONTIN [Concomitant]
     Indication: INTERVERTEBRAL DISC DEGENERATION
     Dosage: 120 MG
     Route: 048
  6. PRAMIPEXOLE DIHYDROCHLORIDE [Concomitant]
     Indication: RESTLESS LEGS SYNDROME
     Route: 048
  7. SINGULAIR [Concomitant]
     Indication: SEASONAL ALLERGY
  8. ASPIRIN [Concomitant]
     Dosage: 325 MG
     Route: 048
  9. METOPROLOL [Concomitant]
     Dosage: 50 MG
     Route: 048
  10. XANAX [Concomitant]
     Indication: INTERVERTEBRAL DISC DEGENERATION
     Dosage: 1.5 MG
     Route: 048
  11. AMBIEN [Concomitant]
     Indication: INSOMNIA
     Route: 048

REACTIONS (3)
  - CHEST DISCOMFORT [None]
  - PEAK EXPIRATORY FLOW RATE DECREASED [None]
  - WHEEZING [None]
